FAERS Safety Report 9469280 (Version 2)
Quarter: 2014Q1

REPORT INFORMATION
  Report Type: Spontaneous
  Country: US (occurrence: US)
  Receive Date: 20130821
  Receipt Date: 20140319
  Transmission Date: 20141002
  Serious: No
  Sender: FDA-Public Use
  Company Number: US-PFIZER INC-2013240817

PATIENT
  Age: 80 Year
  Sex: Female

DRUGS (12)
  1. LIPITOR [Suspect]
     Dosage: UNK
  2. CODEINE [Suspect]
     Dosage: UNK
  3. AUGMENTIN [Suspect]
     Dosage: UNK
  4. COLCHICINE [Suspect]
     Dosage: UNK
  5. DARVOCET [Suspect]
     Dosage: UNK
  6. VOLTAREN [Suspect]
     Dosage: UNK
  7. VYTORIN [Suspect]
     Dosage: UNK
  8. HYDROCODONE [Suspect]
     Dosage: UNK
  9. LOPRESSOR [Suspect]
     Dosage: UNK
  10. NIACIN [Suspect]
     Dosage: UNK
  11. BACTRIM [Suspect]
     Dosage: UNK
  12. NIASPAN [Suspect]
     Dosage: UNK

REACTIONS (1)
  - Drug hypersensitivity [Unknown]
